FAERS Safety Report 7042779-9 (Version None)
Quarter: 2010Q4

REPORT INFORMATION
  Report Type: 
  Country: None (occurrence: None)
  Receive Date: 20101013
  Receipt Date: 20100419
  Transmission Date: 20110411
  Serious: No
  Sender: FDA-Public Use
  Company Number: US-ASTRAZENECA-2010SE17218

PATIENT
  Sex: Male
  Weight: 60.8 kg

DRUGS (4)
  1. SYMBICORT [Suspect]
     Indication: CHRONIC OBSTRUCTIVE PULMONARY DISEASE
     Dosage: 480 MCG
     Route: 055
     Dates: start: 20100201
  2. PRAVASTIN [Concomitant]
     Dosage: DAILY
  3. ASPIRIN [Concomitant]
  4. AMLODIPINE [Concomitant]
     Dosage: DAILY

REACTIONS (2)
  - ANXIETY [None]
  - DYSPNOEA EXERTIONAL [None]
